FAERS Safety Report 7731317-0 (Version None)
Quarter: 2011Q3

REPORT INFORMATION
  Report Type: 
  Country: None (occurrence: None)
  Receive Date: 20110906
  Receipt Date: 20110823
  Transmission Date: 20111222
  Serious: Yes (Other)
  Sender: FDA-Public Use
  Company Number: US-BAYER-2011-076874

PATIENT
  Age: 60 Year
  Sex: Male
  Weight: 86.168 kg

DRUGS (8)
  1. KLONOPIN [Concomitant]
     Dosage: UNK
     Dates: start: 20100901
  2. SIMVASTATIN [Concomitant]
     Dosage: UNK
     Dates: start: 20100901
  3. PLAVIX [Concomitant]
     Dosage: UNK
     Dates: start: 20100901
  4. ASPIRIN [Concomitant]
     Dosage: UNK
     Dates: start: 20100901
  5. RAMIPRIL [Concomitant]
     Dosage: UNK
     Dates: start: 20100901
  6. BRONKAID [Suspect]
     Indication: PRODUCT USED FOR UNKNOWN INDICATION
     Dosage: UNK
     Dates: start: 20110803
  7. AMPYRA [Suspect]
     Indication: GAIT DISTURBANCE
     Dosage: 10 MG, BID
     Route: 048
     Dates: start: 20100701
  8. TRAMADOL HYDROCHLORIDE [Concomitant]
     Dosage: UNK
     Dates: start: 20100901

REACTIONS (3)
  - TREMOR [None]
  - GAIT DISTURBANCE [None]
  - BALANCE DISORDER [None]
